FAERS Safety Report 8841724 (Version 3)
Quarter: 2013Q2

REPORT INFORMATION
  Report Type: Spontaneous
  Country: BR (occurrence: BR)
  Receive Date: 20121016
  Receipt Date: 20130606
  Transmission Date: 20140414
  Serious: Yes (Other)
  Sender: FDA-Public Use
  Company Number: BR-AMGEN-BRASP2012065311

PATIENT
  Age: 46 Year
  Sex: Female
  Weight: 70 kg

DRUGS (9)
  1. ENBREL [Suspect]
     Indication: RHEUMATOID ARTHRITIS
     Dosage: 50 MG, QWK
     Route: 058
     Dates: start: 201109
  2. ENBREL [Suspect]
     Dosage: 50 MG, ONCE WEEKLY
     Route: 058
     Dates: start: 201201
  3. LEVOTHYROXINE [Concomitant]
     Indication: THYROID DISORDER
     Dosage: 50 MG, 1X/DAY
     Dates: start: 2009
  4. CITALOPRAM [Concomitant]
     Indication: DEPRESSION
     Dosage: 1 CAPSULE OR TABLET (20 MG), 1X/DAY
     Route: 048
     Dates: start: 201204
  5. CITALOPRAM [Concomitant]
     Indication: PAIN
  6. OMEPRAZOLE [Concomitant]
     Indication: GASTRITIS
     Dosage: 1 TABLET (20 MG), 1X/DAY
     Route: 048
     Dates: start: 2010
  7. NIMESULIDE [Concomitant]
     Dosage: UNK
  8. COMBIRON [Concomitant]
     Dosage: 1 TABLET (400 MG), 1X/DAY
     Route: 048
  9. LEVOTHYROXINE SODIUM [Concomitant]
     Dosage: 1 TABLET (88 MG), 1X/DAY
     Route: 048

REACTIONS (3)
  - Gallbladder disorder [Unknown]
  - Arthralgia [Unknown]
  - Drug ineffective [Unknown]
